FAERS Safety Report 11278871 (Version 1)
Quarter: 2015Q3

REPORT INFORMATION
  Report Type: Spontaneous
  Country: US (occurrence: US)
  Receive Date: 20150717
  Receipt Date: 20150717
  Transmission Date: 20151125
  Serious: Yes (Other)
  Sender: FDA-Public Use
  Company Number: US-SANOFI-AVENTIS-2012SA064236

PATIENT
  Age: 56 Year
  Sex: Male

DRUGS (2)
  1. PLAVIX [Suspect]
     Active Substance: CLOPIDOGREL BISULFATE
     Indication: STENT PLACEMENT
     Route: 065
     Dates: start: 200106, end: 200509
  2. ASPIRIN. [Concomitant]
     Active Substance: ASPIRIN
     Dates: start: 200106

REACTIONS (8)
  - Aphasia [Unknown]
  - Reflexes abnormal [Unknown]
  - Haemorrhage [Unknown]
  - Balance disorder [Unknown]
  - Amnesia [Unknown]
  - Peroneal nerve palsy [Unknown]
  - Paralysis [Unknown]
  - Cerebral haemorrhage [Unknown]

NARRATIVE: CASE EVENT DATE: 200509
